FAERS Safety Report 22319010 (Version 1)
Quarter: 2023Q2

REPORT INFORMATION
  Report Type: Spontaneous
  Country: TN (occurrence: TN)
  Receive Date: 20230515
  Receipt Date: 20230515
  Transmission Date: 20230722
  Serious: Yes (Death, Life-Threatening, Other)
  Sender: FDA-Public Use
  Company Number: TN-PFIZER INC-PV202300084727

PATIENT
  Age: 12 Year
  Sex: Male

DRUGS (2)
  1. METHYLPREDNISOLONE SODIUM SUCCINATE [Suspect]
     Active Substance: METHYLPREDNISOLONE SODIUM SUCCINATE
     Indication: Behcet^s syndrome
     Dosage: 15 MG/KG/DAY OVER THREE DAYS
     Route: 042
  2. CYCLOPHOSPHAMIDE [Suspect]
     Active Substance: CYCLOPHOSPHAMIDE
     Indication: Behcet^s syndrome
     Dosage: 700 G/M2 (BOLUS)
     Route: 042

REACTIONS (1)
  - Drug ineffective [Fatal]
